FAERS Safety Report 9627573 (Version 1)
Quarter: 2013Q4

REPORT INFORMATION
  Report Type: Not Available
  Country: US (occurrence: US)
  Receive Date: 20131016
  Receipt Date: 20131016
  Transmission Date: 20140711
  Serious: Yes (Hospitalization)
  Sender: FDA-Public Use
  Company Number: US-LUNDBECK-DKLU1089947

PATIENT
  Age: 1 Year
  Sex: Male

DRUGS (7)
  1. SABRIL (FOR ORAL SOLUTION) [Suspect]
     Indication: INFANTILE SPASMS
     Dates: start: 201301
  2. SABRIL (FOR ORAL SOLUTION) [Suspect]
  3. SABRIL (FOR ORAL SOLUTION) [Suspect]
  4. SABRIL (FOR ORAL SOLUTION) [Suspect]
  5. ONFI [Concomitant]
     Indication: INFANTILE SPASMS
  6. TOPAMAX [Concomitant]
     Indication: INFANTILE SPASMS
  7. DEPAKOTE [Concomitant]
     Indication: INFANTILE SPASMS

REACTIONS (3)
  - Respiratory depression [Recovering/Resolving]
  - Pneumonia aspiration [Recovering/Resolving]
  - Lethargy [Recovering/Resolving]
